FAERS Safety Report 8387934-0 (Version None)
Quarter: 2012Q2

REPORT INFORMATION
  Report Type: 
  Country: None (occurrence: None)
  Receive Date: 20120525
  Receipt Date: 20120523
  Transmission Date: 20120825
  Serious: Yes (Hospitalization, Other)
  Sender: FDA-Public Use
  Company Number: US-GILEAD-2012-0054446

PATIENT
  Sex: Female

DRUGS (2)
  1. LETAIRIS [Suspect]
     Indication: SYSTEMIC SCLEROSIS
  2. LETAIRIS [Suspect]
     Indication: PULMONARY HYPERTENSION
     Dosage: 10 MG, UNK
     Route: 048
     Dates: start: 20090714

REACTIONS (4)
  - HYPOTENSION [None]
  - HYPERTENSION [None]
  - BACK PAIN [None]
  - RENAL TUBULAR NECROSIS [None]
